FAERS Safety Report 5422290-9 (Version None)
Quarter: 2007Q3

REPORT INFORMATION
  Report Type: 
  Country: None (occurrence: None)
  Receive Date: 20070822
  Receipt Date: 20070816
  Transmission Date: 20080115
  Serious: Yes (Hospitalization)
  Sender: FDA-Public Use
  Company Number: US-AVENTIS-200717556GDDC

PATIENT
  Age: 30 Year
  Sex: Female
  Weight: 80 kg

DRUGS (16)
  1. LANTUS [Suspect]
     Indication: DIABETES MELLITUS
     Route: 058
     Dates: start: 20050604
  2. INSULIN GLULISINE [Suspect]
     Indication: DIABETES MELLITUS
     Route: 058
     Dates: start: 20070621
  3. AVANDIA [Concomitant]
     Route: 048
     Dates: start: 20060416
  4. FELODIPINE [Concomitant]
     Route: 048
     Dates: start: 20070530
  5. JANUVIA [Concomitant]
     Route: 048
     Dates: start: 20070320
  6. SIMVASTATIN [Concomitant]
     Route: 048
     Dates: start: 20070530
  7. REGLAN                             /00041901/ [Concomitant]
     Route: 048
     Dates: start: 20070306
  8. PREDNISONE TAB [Concomitant]
     Route: 048
     Dates: start: 20040812
  9. CELLCEPT [Concomitant]
     Route: 048
     Dates: start: 20040812
  10. PROGRAF [Concomitant]
     Route: 048
     Dates: start: 20040812
  11. TRICOR                             /00090101/ [Concomitant]
     Route: 048
     Dates: start: 20051012
  12. NIFEREX                            /01214501/ [Concomitant]
     Route: 048
     Dates: start: 20051018
  13. ASCORBIC ACID [Concomitant]
     Route: 048
     Dates: start: 20051018
  14. VICODIN [Concomitant]
     Route: 048
     Dates: start: 20050614
  15. PREVACID [Concomitant]
     Route: 048
     Dates: start: 20070530
  16. COREG [Concomitant]
     Route: 048
     Dates: start: 20050503

REACTIONS (3)
  - BLOOD GLUCOSE INCREASED [None]
  - HYPOTENSION [None]
  - SYNCOPE [None]
